FAERS Safety Report 25262118 (Version 3)
Quarter: 2025Q2

REPORT INFORMATION
  Report Type: Report from Study
  Country: SE (occurrence: SE)
  Receive Date: 20250502
  Receipt Date: 20250610
  Transmission Date: 20250716
  Serious: Yes (Hospitalization, Other)
  Sender: ABBVIE
  Company Number: SE-ABBVIE-6262334

PATIENT
  Age: 71 Year
  Sex: Female
  Weight: 50 kg

DRUGS (2)
  1. FOSCARBIDOPA\FOSLEVODOPA [Suspect]
     Active Substance: FOSCARBIDOPA\FOSLEVODOPA
     Indication: Parkinson^s disease
     Route: 058
     Dates: start: 20250331
  2. Madopar Quick mite [Concomitant]
     Indication: Product used for unknown indication
     Dosage: IN THE MORNING?FORM STRENGTH: 50 MILLIGRAM
     Dates: start: 202504

REACTIONS (7)
  - Fall [Recovering/Resolving]
  - Hyperkinesia [Unknown]
  - Seizure [Recovering/Resolving]
  - Depressed level of consciousness [Recovered/Resolved]
  - Blood pressure decreased [Unknown]
  - Personality change [Unknown]
  - Concussion [Unknown]

NARRATIVE: CASE EVENT DATE: 20250101
